FAERS Safety Report 23343545 (Version 1)
Quarter: 2023Q4

REPORT INFORMATION
  Report Type: Spontaneous
  Country: US (occurrence: None)
  Receive Date: 20231227
  Receipt Date: 20231227
  Transmission Date: 20240109
  Serious: Yes (Other)
  Sender: FDA-Public Use
  Company Number: None

PATIENT
  Age: 63 Year
  Sex: Male
  Weight: 65.25 kg

DRUGS (4)
  1. SYNJARDY [Suspect]
     Active Substance: EMPAGLIFLOZIN\METFORMIN HYDROCHLORIDE
     Indication: Type 2 diabetes mellitus
     Dosage: OTHER QUANTITY : 60 CAPSULE(S);?OTHER FREQUENCY : 2 TIME PER DAY;?
     Route: 048
  2. blood test meter [Concomitant]
  3. blood pressure monitor [Concomitant]
  4. VITAMINS [Concomitant]
     Active Substance: VITAMINS

REACTIONS (3)
  - Headache [None]
  - Asthenia [None]
  - Blood glucose decreased [None]

NARRATIVE: CASE EVENT DATE: 20231123
